FAERS Safety Report 16066053 (Version 1)
Quarter: 2019Q1

REPORT INFORMATION
  Report Type: Spontaneous
  Country: US (occurrence: US)
  Receive Date: 20190212
  Receipt Date: 20190212
  Transmission Date: 20190418
  Serious: No
  Sender: FDA-Public Use
  Company Number: None

PATIENT
  Age: 43 Year
  Sex: Male

DRUGS (1)
  1. MYCOPHENOLIC TAB 360MG  DR [Suspect]
     Active Substance: MYCOPHENOLIC ACID
     Route: 048

REACTIONS (1)
  - Product use issue [None]

NARRATIVE: CASE EVENT DATE: 20190212
